FAERS Safety Report 6719891-4 (Version None)
Quarter: 2010Q2

REPORT INFORMATION
  Report Type: 
  Country: None (occurrence: None)
  Receive Date: 20100511
  Receipt Date: 20100428
  Transmission Date: 20101027
  Serious: Yes (Other)
  Sender: FDA-Public Use
  Company Number: DE-AMGEN-US379446

PATIENT
  Age: 38 Year
  Sex: Male

DRUGS (1)
  1. ENBREL [Suspect]
     Indication: DRUG USE FOR UNKNOWN INDICATION
     Dosage: UNKNOWN
     Route: 058
     Dates: start: 20090801

REACTIONS (4)
  - BLOOD SMEAR TEST ABNORMAL [None]
  - LEUKAEMIA [None]
  - LEUKOCYTOSIS [None]
  - LYMPHOPENIA [None]
